FAERS Safety Report 4456921-7 (Version None)
Quarter: 2004Q3

REPORT INFORMATION
  Report Type: 
  Country: None (occurrence: None)
  Receive Date: 20040921
  Receipt Date: 20040913
  Transmission Date: 20050211
  Serious: Yes (Life-Threatening, Hospitalization)
  Sender: FDA-Public Use
  Company Number: STA-AE-04-MTX-356

PATIENT
  Age: 81 Year
  Sex: Female

DRUGS (12)
  1. RHEUMATREX [Suspect]
     Indication: RHEUMATOID ARTHRITIS
     Dosage: 2 MG 1X PER 1 WK, ORAL
     Route: 048
     Dates: start: 19990915, end: 19990915
  2. RHEUMATREX [Suspect]
     Indication: RHEUMATOID ARTHRITIS
     Dosage: 4 MG 1X PER 1 WK, ORAL
     Route: 048
     Dates: start: 19990922, end: 19990922
  3. RHEUMATREX [Suspect]
     Indication: RHEUMATOID ARTHRITIS
     Dosage: 8 MG 1X PER 1 WK, ORAL; 6 MG 1 X PER 1 WK ORAL
     Route: 048
     Dates: start: 19990929, end: 19990930
  4. RHEUMATREX [Suspect]
     Indication: RHEUMATOID ARTHRITIS
     Dosage: 8 MG 1X PER 1 WK, ORAL; 6 MG 1 X PER 1 WK ORAL
     Route: 048
     Dates: start: 20000803, end: 20040620
  5. METHOTREXATE [Suspect]
     Indication: RHEUMATOID ARTHRITIS
     Dosage: UNK, UNK, ORAL; 8MG 1X PER 1 WK ORAL
     Route: 048
     Dates: start: 19981114, end: 19990301
  6. METHOTREXATE [Suspect]
     Indication: RHEUMATOID ARTHRITIS
     Dosage: UNK, UNK, ORAL; 8MG 1X PER 1 WK ORAL
     Route: 048
     Dates: start: 19991006, end: 19991118
  7. PREDNISOLONE [Concomitant]
  8. PREDNISOLONE [Concomitant]
  9. SELBEX (TEPRENEONE) [Concomitant]
  10. CYTOTEC [Concomitant]
  11. SIGMART (NICORANDIL) [Concomitant]
  12. BAYASPIRINA (ACETYLSALICYLIC ACID) [Concomitant]

REACTIONS (8)
  - BLOOD ALKALINE PHOSPHATASE INCREASED [None]
  - GAMMA-GLUTAMYLTRANSFERASE INCREASED [None]
  - GLASGOW COMA SCALE ABNORMAL [None]
  - HEPATIC FUNCTION ABNORMAL [None]
  - HYPOGLYCAEMIC COMA [None]
  - JAUNDICE [None]
  - LYMPHOMA [None]
  - THROMBOCYTOPENIA [None]
